FAERS Safety Report 7735680-6 (Version None)
Quarter: 2011Q3

REPORT INFORMATION
  Report Type: 
  Country: None (occurrence: None)
  Receive Date: 20110907
  Receipt Date: 20110825
  Transmission Date: 20111222
  Serious: Yes (Other)
  Sender: FDA-Public Use
  Company Number: PHHY2011AU76266

PATIENT
  Sex: Female

DRUGS (1)
  1. EXJADE [Suspect]
     Indication: IRON OVERLOAD
     Dosage: 500 MG
     Route: 048
     Dates: start: 20101105

REACTIONS (5)
  - DISORIENTATION [None]
  - SPEECH DISORDER [None]
  - BLOOD IRON INCREASED [None]
  - PLASMA VISCOSITY DECREASED [None]
  - TRANSIENT ISCHAEMIC ATTACK [None]
